FAERS Safety Report 6443273-6 (Version None)
Quarter: 2009Q4

REPORT INFORMATION
  Report Type: 
  Country: None (occurrence: None)
  Receive Date: 20091113
  Receipt Date: 20091031
  Transmission Date: 20100525
  Serious: Yes (Hospitalization, Other)
  Sender: FDA-Public Use
  Company Number: 2008-01665

PATIENT
  Age: 50 Year
  Sex: Female
  Weight: 58.2 kg

DRUGS (18)
  1. VELCADE [Suspect]
     Indication: MANTLE CELL LYMPHOMA
     Dosage: 1.3 MG/M2, UNK, IV BOLUS
     Route: 040
     Dates: start: 20080414, end: 20080418
  2. RITUXIMAB           (RITUXIMAB) INJECTION, [Suspect]
     Indication: MANTLE CELL LYMPHOMA
     Dosage: 375 MG/M2, UNK, INTRAVENOUS
     Route: 042
     Dates: start: 20080414, end: 20080415
  3. CYCLOPHOSPHAMIDE [Suspect]
     Indication: MANTLE CELL LYMPHOMA
     Dosage: 300 MG/M2, UNK, INTRAVENOUS
     Route: 042
     Dates: start: 20080414, end: 20080418
  4. DOXORUBICIN HCL [Suspect]
     Indication: MANTLE CELL LYMPHOMA
     Dosage: 25 MG/M2, UNK, INTRAVENOUS
     Route: 042
     Dates: start: 20080414, end: 20080416
  5. VINCRISTINE [Suspect]
     Indication: MANTLE CELL LYMPHOMA
     Dosage: 1 MG, UNK, IV BOLUS
     Route: 040
     Dates: start: 20080414, end: 20080417
  6. DEXAMETHASONE TAB [Suspect]
     Indication: MANTLE CELL LYMPHOMA
     Dosage: 40 MG, UNK, UNK
     Route: 065
     Dates: start: 20080414, end: 20080418
  7. NEULASTA [Suspect]
     Indication: MANTLE CELL LYMPHOMA
     Dosage: 6 MG, UNK, SUBCUTANEOUS
     Route: 058
     Dates: start: 20080414, end: 20080421
  8. COMPAZINE [Concomitant]
  9. CYMBALTA [Concomitant]
  10. LEVAQUIN [Concomitant]
  11. LEXAPRO [Concomitant]
  12. MEVACOR [Concomitant]
  13. PROVIGIL [Concomitant]
  14. ZANAFLEX [Concomitant]
  15. ZOVIRAX [Concomitant]
  16. ZYLOPRIM [Concomitant]
  17. DILAUDID [Concomitant]
  18. VICODIN ES [Concomitant]

REACTIONS (10)
  - ALOPECIA [None]
  - BACK PAIN [None]
  - BACTERAEMIA [None]
  - HAEMATOCRIT DECREASED [None]
  - HAEMOGLOBIN DECREASED [None]
  - INFECTION [None]
  - NEUTROPHIL COUNT DECREASED [None]
  - ORAL PAIN [None]
  - RED BLOOD CELL COUNT DECREASED [None]
  - STOMATITIS [None]
